FAERS Safety Report 9466211 (Version 1)
Quarter: 2013Q3

REPORT INFORMATION
  Report Type: Spontaneous
  Country: FR (occurrence: FR)
  Receive Date: 20130820
  Receipt Date: 20130820
  Transmission Date: 20140515
  Serious: Yes (Hospitalization, Other)
  Sender: FDA-Public Use
  Company Number: FR-009507513-1308FRA004240

PATIENT
  Age: 73 Year
  Sex: Female

DRUGS (7)
  1. PROGLICEM [Suspect]
     Indication: HYPOGLYCAEMIA
     Dosage: 25 MG, BID
     Route: 048
     Dates: start: 20120923
  2. PROGLICEM [Suspect]
     Dosage: 150 MG, QD
     Route: 048
     Dates: start: 20121002
  3. PROGLICEM [Suspect]
     Dosage: 175 MG, QD
     Route: 048
     Dates: start: 20121003
  4. PROGLICEM [Suspect]
     Dosage: 200 MG, QD
     Route: 048
     Dates: start: 20121005
  5. PROGLICEM [Suspect]
     Dosage: 100 MG, BID
     Route: 048
     Dates: start: 20121008
  6. LASILIX [Suspect]
     Indication: CARDIAC FAILURE
     Dosage: UNK
     Dates: start: 20121010
  7. AUGMENTIN [Suspect]
     Indication: LUNG DISORDER
     Dosage: 1 G, TID
     Dates: start: 20121015, end: 20121021

REACTIONS (5)
  - Dermatitis exfoliative [Recovered/Resolved]
  - Drug reaction with eosinophilia and systemic symptoms [Recovered/Resolved]
  - Liver disorder [Recovered/Resolved]
  - Neutropenia [Recovered/Resolved]
  - Anaemia [Recovered/Resolved]
